FAERS Safety Report 10137650 (Version 1)
Quarter: 2014Q2

REPORT INFORMATION
  Report Type: Spontaneous
  Country: US (occurrence: None)
  Receive Date: 20140428
  Receipt Date: 20140428
  Transmission Date: 20141212
  Serious: No
  Sender: FDA-Public Use
  Company Number: None

PATIENT
  Age: 59 Year
  Sex: Female

DRUGS (1)
  1. AZITHROMYCIN [Suspect]
     Indication: PHARYNGITIS
     Dosage: 2 PILLS DAY 1;1 PILL 4/DAYS, ONCE DAILY, TAKEN BY MOUTH

REACTIONS (4)
  - Abdominal pain lower [None]
  - Abdominal distension [None]
  - Pain [None]
  - Mucous stools [None]
